FAERS Safety Report 5883861-9 (Version None)
Quarter: 2008Q3

REPORT INFORMATION
  Report Type: 
  Country: None (occurrence: None)
  Receive Date: 20080915
  Receipt Date: 20071123
  Transmission Date: 20090109
  Serious: Yes (Hospitalization)
  Sender: FDA-Public Use
  Company Number: FR-AVENTIS-200713728FR

PATIENT
  Age: 64 Year
  Sex: Female

DRUGS (9)
  1. SOLUPRED                           /00016201/ [Suspect]
     Route: 048
     Dates: start: 20070827, end: 20070831
  2. THIOCOLCHICOSIDE [Suspect]
     Indication: DRUG USE FOR UNKNOWN INDICATION
     Route: 048
     Dates: start: 20070817, end: 20070831
  3. VOLTAREN [Suspect]
     Indication: DRUG USE FOR UNKNOWN INDICATION
     Route: 048
     Dates: start: 20070817, end: 20070831
  4. NEXIUM [Suspect]
     Indication: DRUG USE FOR UNKNOWN INDICATION
     Route: 048
     Dates: start: 20070817, end: 20070831
  5. TELFAST                            /01314201/ [Suspect]
     Route: 048
     Dates: start: 20070827, end: 20070831
  6. PRITORPLUS [Concomitant]
     Indication: DRUG USE FOR UNKNOWN INDICATION
     Route: 048
  7. CATAPRESSAN                        /00171101/ [Concomitant]
     Route: 048
  8. ATARAX [Concomitant]
     Indication: DRUG USE FOR UNKNOWN INDICATION
     Route: 048
  9. VASTAREL [Concomitant]
     Indication: DRUG USE FOR UNKNOWN INDICATION
     Route: 048

REACTIONS (5)
  - ALANINE AMINOTRANSFERASE INCREASED [None]
  - ASPARTATE AMINOTRANSFERASE INCREASED [None]
  - LIPASE INCREASED [None]
  - PURPURA [None]
  - RASH MACULAR [None]
